FAERS Safety Report 10583297 (Version 4)
Quarter: 2014Q4

REPORT INFORMATION
  Report Type: Spontaneous
  Country: FR (occurrence: None)
  Receive Date: 20141112
  Receipt Date: 20141224
  Transmission Date: 20150529
  Serious: Yes (Life-Threatening, Hospitalization)
  Sender: FDA-Public Use
  Company Number: FR-20140357

PATIENT
  Age: 85 Year
  Sex: Female

DRUGS (18)
  1. PAROXETINE [Concomitant]
     Active Substance: PAROXETINE\PAROXETINE HYDROCHLORIDE
  2. VITAMIN B1 B6 (PYRIDOXINE HYDROCHLORIDE, THIAMINE HYDROCHLORIDE) [Concomitant]
  3. ZOPICLONE (ZOPICLONE) (ZOPICLONE) [Concomitant]
     Active Substance: ZOPICLONE
  4. DOTAREM [Suspect]
     Active Substance: GADOTERATE MEGLUMINE
     Indication: NUCLEAR MAGNETIC RESONANCE IMAGING
     Dosage: 15 ML (15 ML, 1 - 1 D)
     Dates: start: 20140717, end: 20140717
  5. SIMVASTATINE (SIMVASTATINE) (SIMVASTATINE) [Concomitant]
  6. MIMPARA (CINACALCET HYDROCHLORIDE) ?(CINACALCET HYDROCHLORIDE) [Concomitant]
  7. PARACETAMOL (PARACETAMOL) (PARACETAMOL) [Concomitant]
     Active Substance: ACETAMINOPHEN
  8. TIAPRIDAL (TIAPRIDAL) (TIAPRIDAL) [Concomitant]
  9. KARDEGIC (ACETYLSALICYLATE LYSINE) (ACETYLSALICYLATE LYSINE) [Concomitant]
  10. AVLOCARDYL (PROPRANOLOL) (PROPRANOLOL) [Concomitant]
  11. ALLOPURINOL (ALLOPURINOL) (ALLOPURINOL) [Concomitant]
     Active Substance: ALLOPURINOL
  12. IOMERON [Suspect]
     Active Substance: IOMEPROL
     Indication: ANGIOSCOPY
     Dosage: 75 ML (75 ML, 1 IN 1 D), INTRAVENOUS (NOT OTHERWISE SPECIFIED)?
     Route: 042
     Dates: start: 20140715, end: 20140715
  13. LOVENOX [Suspect]
     Active Substance: ENOXAPARIN SODIUM
     Indication: PULMONARY EMBOLISM
     Dosage: INTRAVENOUS (NOT OTHERWISE SPECIFIED)
     Route: 042
     Dates: start: 20140715, end: 20140718
  14. LASILIX (FUROSEMIDE) (FUROSEMIDE) [Concomitant]
     Active Substance: FUROSEMIDE
  15. LANTUS [Concomitant]
     Active Substance: INSULIN GLARGINE
  16. INEXIUM (ESOMEPRAZOLE MAGNESIUM) (ESOMEPRAZOLE MAGNESIUM) [Concomitant]
     Active Substance: ESOMEPRAZOLE MAGNESIUM
  17. HUMALOG [Concomitant]
     Active Substance: INSULIN LISPRO
  18. AMLOR (AMLODIPINE BESILATE) [Concomitant]
     Active Substance: AMLODIPINE BESYLATE

REACTIONS (10)
  - Hypoventilation [None]
  - Anuria [None]
  - Acidosis [None]
  - Fluid overload [None]
  - Hypercapnia [None]
  - Respiratory distress [None]
  - Sepsis [None]
  - Blood pressure abnormal [None]
  - Acute kidney injury [None]
  - Renal tubular necrosis [None]

NARRATIVE: CASE EVENT DATE: 20140717
